FAERS Safety Report 5230426-8 (Version None)
Quarter: 2007Q1

REPORT INFORMATION
  Report Type: 
  Country: None (occurrence: None)
  Receive Date: 20070206
  Receipt Date: 20070129
  Transmission Date: 20070707
  Serious: Yes (Hospitalization, Other)
  Sender: FDA-Public Use
  Company Number: BR-AVENTIS-200710860GDDC

PATIENT
  Age: 60 Year
  Sex: Male
  Weight: 80 kg

DRUGS (2)
  1. RIFALDIN [Suspect]
     Dosage: DOSE: 2 CAPS
     Route: 048
     Dates: start: 20061216, end: 20070117
  2. HOMEOPATIC PREPARATION [Concomitant]

REACTIONS (2)
  - CONVULSION [None]
  - ISCHAEMIC STROKE [None]
